FAERS Safety Report 21904313 (Version 1)
Quarter: 2023Q1

REPORT INFORMATION
  Report Type: Spontaneous
  Country: US (occurrence: US)
  Receive Date: 20230124
  Receipt Date: 20230124
  Transmission Date: 20230418
  Serious: No
  Sender: FDA-Public Use
  Company Number: US-TEVA-2023-US-2845903

PATIENT
  Sex: Female

DRUGS (2)
  1. LORAZEPAM [Suspect]
     Active Substance: LORAZEPAM
     Indication: Anxiety
     Route: 065
     Dates: start: 201802
  2. LORAZEPAM [Suspect]
     Active Substance: LORAZEPAM
     Indication: Panic attack

REACTIONS (6)
  - Drug ineffective [Unknown]
  - Tongue discomfort [Unknown]
  - Throat irritation [Unknown]
  - Wrong technique in product usage process [Unknown]
  - Wrong technique in product usage process [Unknown]
  - Unevaluable event [Unknown]

NARRATIVE: CASE EVENT DATE: 20180201
